FAERS Safety Report 4527284-3 (Version None)
Quarter: 2004Q4

REPORT INFORMATION
  Report Type: 
  Country: None (occurrence: None)
  Receive Date: 20041215
  Receipt Date: 20041203
  Transmission Date: 20050328
  Serious: Yes (Other)
  Sender: FDA-Public Use
  Company Number: US-JNJFOC-20041201392

PATIENT
  Sex: Female
  Weight: 104.33 kg

DRUGS (18)
  1. REMICADE [Suspect]
     Route: 042
  2. REMICADE [Suspect]
     Indication: RHEUMATOID ARTHRITIS
     Route: 042
  3. PREDNISONE [Concomitant]
  4. AZATHIAPRINE [Concomitant]
  5. GLUCOTROL [Concomitant]
     Indication: DIABETES MELLITUS
  6. GLUCOPHAGE [Concomitant]
     Indication: DIABETES MELLITUS
  7. INDERAL [Concomitant]
  8. ASPIRIN [Concomitant]
  9. LIPITOR [Concomitant]
  10. FOSAMAX [Concomitant]
  11. VITAMIN D [Concomitant]
  12. DAPSONE [Concomitant]
  13. INDOMETHACIN [Concomitant]
  14. XALATAN [Concomitant]
     Indication: GLAUCOMA
  15. NEXIUM [Concomitant]
  16. FUROSEMIDE [Concomitant]
  17. SMZ-TMP [Concomitant]
  18. SMZ-TMP [Concomitant]

REACTIONS (5)
  - ARTHRALGIA [None]
  - ASTHENIA [None]
  - CORONARY ARTERY OCCLUSION [None]
  - DYSPNOEA [None]
  - HYPERHIDROSIS [None]
